FAERS Safety Report 13961860 (Version 2)
Quarter: 2017Q4

REPORT INFORMATION
  Report Type: Spontaneous
  Country: US (occurrence: US)
  Receive Date: 20170912
  Receipt Date: 20171024
  Transmission Date: 20180320
  Serious: Yes (Other)
  Sender: FDA-Public Use
  Company Number: US-LANNETT COMPANY, INC.-US-2017LAN001034

PATIENT

DRUGS (4)
  1. ZYRTEC [Concomitant]
     Active Substance: CETIRIZINE HYDROCHLORIDE
     Indication: PRODUCT USED FOR UNKNOWN INDICATION
     Dosage: UNK
     Route: 065
  2. OLOPATADINE. [Concomitant]
     Active Substance: OLOPATADINE
     Indication: CONJUNCTIVITIS ALLERGIC
     Dosage: 0.2 % DROPS, UNK
     Route: 047
     Dates: start: 20170803
  3. LORATADINE. [Suspect]
     Active Substance: LORATADINE
     Indication: EYE PRURITUS
     Dosage: 5 MG, QD IN THE MORNING (STRENGTH 5 MG/5 ML)
     Route: 048
     Dates: start: 20170605, end: 201708
  4. LORATADINE. [Suspect]
     Active Substance: LORATADINE
     Indication: HYPERSENSITIVITY
     Dosage: 5 MG, QD IN THE MORNING (STRENGTH 5 MG/5 ML)
     Route: 048
     Dates: start: 201708

REACTIONS (3)
  - Amnesia [Unknown]
  - Confusional state [Recovered/Resolved]
  - Suspected product tampering [Unknown]

NARRATIVE: CASE EVENT DATE: 20170826
